FAERS Safety Report 6672023-3 (Version None)
Quarter: 2010Q2

REPORT INFORMATION
  Report Type: 
  Country: None (occurrence: None)
  Receive Date: 20100406
  Receipt Date: 20100324
  Transmission Date: 20101027
  Serious: Yes (Other)
  Sender: FDA-Public Use
  Company Number: JP-GDP-10407708

PATIENT
  Sex: Female

DRUGS (2)
  1. DIFFERIN [Suspect]
     Indication: ACNE
     Dosage: (TOPICAL) ; (TOPICAL)
     Route: 061
     Dates: start: 20081206, end: 20090105
  2. DIFFERIN [Suspect]
     Indication: ACNE
     Dosage: (TOPICAL) ; (TOPICAL)
     Route: 061
     Dates: start: 20090501, end: 20090501

REACTIONS (3)
  - ABSCESS BACTERIAL [None]
  - ERYTHEMA [None]
  - UPPER RESPIRATORY TRACT INFECTION [None]
